FAERS Safety Report 21670688 (Version 1)
Quarter: 2022Q4

REPORT INFORMATION
  Report Type: Report from Study
  Country: CA (occurrence: CA)
  Receive Date: 20221202
  Receipt Date: 20221202
  Transmission Date: 20230113
  Serious: Yes (Other)
  Sender: FDA-Public Use
  Company Number: CA-ABBVIE-4218829

PATIENT
  Sex: Male

DRUGS (1)
  1. RINVOQ [Suspect]
     Active Substance: UPADACITINIB
     Indication: Rheumatoid arthritis
     Route: 048
     Dates: start: 20221117

REACTIONS (7)
  - Multiple sclerosis [Unknown]
  - Joint stiffness [Not Recovered/Not Resolved]
  - Feeling abnormal [Unknown]
  - Arthralgia [Not Recovered/Not Resolved]
  - Arthropathy [Unknown]
  - Middle insomnia [Unknown]
  - Joint range of motion decreased [Unknown]
